FAERS Safety Report 15807318 (Version 1)
Quarter: 2019Q1

REPORT INFORMATION
  Report Type: Spontaneous
  Country: TR (occurrence: TR)
  Receive Date: 20190110
  Receipt Date: 20190110
  Transmission Date: 20190417
  Serious: Yes (Hospitalization)
  Sender: FDA-Public Use
  Company Number: TR-MYLANLABS-2019M1001313

PATIENT
  Age: 67 Year
  Sex: Male

DRUGS (4)
  1. MELPHALAN. [Concomitant]
     Active Substance: MELPHALAN
     Indication: PLASMA CELL LEUKAEMIA
     Dosage: 1-4 DAYS; RECEIVED 6 CYCLES OF CHEMOTHERAPY REGIMEN.
     Route: 065
  2. IMATINIB. [Suspect]
     Active Substance: IMATINIB MESYLATE
     Indication: CHRONIC MYELOID LEUKAEMIA
     Dosage: 400 MILLIGRAM, QD
     Route: 065
  3. BORTEZOMIB. [Interacting]
     Active Substance: BORTEZOMIB
     Indication: PLASMA CELL LEUKAEMIA
     Dosage: ON DAY 1, 4, 8 AND 11; RECEIVED 6 CYCLES OF CHEMOTHERAPY REGIMEN.
     Route: 065
  4. PREDNISONE. [Concomitant]
     Active Substance: PREDNISONE
     Indication: PLASMA CELL LEUKAEMIA
     Dosage: RECEIVED 6 CYCLES OF CHEMOTHERAPY.
     Route: 065

REACTIONS (5)
  - Abdominal discomfort [Unknown]
  - Plasma cell leukaemia [Recovered/Resolved]
  - Ileus paralytic [Recovered/Resolved]
  - Oedema peripheral [Unknown]
  - Drug interaction [Unknown]
